FAERS Safety Report 5789480-7 (Version None)
Quarter: 2008Q2

REPORT INFORMATION
  Report Type: 
  Country: None (occurrence: None)
  Receive Date: 20080626
  Receipt Date: 20080623
  Transmission Date: 20081010
  Serious: Yes (Hospitalization)
  Sender: FDA-Public Use
  Company Number: NL-TEVA-173353ISR

PATIENT
  Age: 58 Year
  Sex: Male

DRUGS (4)
  1. METHOTREXATE [Suspect]
  2. LEFLUNOMIDE [Suspect]
  3. REMICADE [Suspect]
     Dates: start: 20020101
  4. CORTICOSTEROIDS [Suspect]

REACTIONS (2)
  - ASPERGILLOMA [None]
  - WEIGHT DECREASED [None]
